FAERS Safety Report 6535366-X (Version None)
Quarter: 2010Q1

REPORT INFORMATION
  Report Type: 
  Country: None (occurrence: None)
  Receive Date: 20100111
  Receipt Date: 20100111
  Transmission Date: 20100710
  Serious: No
  Sender: FDA-Public Use
  Company Number: None

PATIENT
  Sex: Male
  Weight: 72.5755 kg

DRUGS (1)
  1. ZICAM N/A ZICAM, LLC, SUBSIDIARY OF [Suspect]
     Indication: NASOPHARYNGITIS
     Dosage: ONE SQUIRT ONCE NASAL
     Route: 045

REACTIONS (2)
  - ANOSMIA [None]
  - UNEVALUABLE EVENT [None]
